FAERS Safety Report 25955957 (Version 1)
Quarter: 2025Q4

REPORT INFORMATION
  Report Type: Spontaneous
  Country: US (occurrence: None)
  Receive Date: 20251024
  Receipt Date: 20251024
  Transmission Date: 20260117
  Serious: Yes (Other)
  Sender: UCB
  Company Number: US-UCBSA-2025044592

PATIENT

DRUGS (1)
  1. BIMZELX [Suspect]
     Active Substance: BIMEKIZUMAB-BKZX
     Indication: Hidradenitis
     Dosage: UNK

REACTIONS (4)
  - Suicidal ideation [Unknown]
  - Hidradenitis [Unknown]
  - Condition aggravated [Unknown]
  - Psoriasis [Unknown]
